FAERS Safety Report 15801343 (Version 1)
Quarter: 2019Q1

REPORT INFORMATION
  Report Type: Report from Study
  Country: IT (occurrence: IT)
  Receive Date: 20190109
  Receipt Date: 20190109
  Transmission Date: 20190417
  Serious: Yes (Other)
  Sender: FDA-Public Use
  Company Number: IT-ROCHE-2205860

PATIENT

DRUGS (3)
  1. BEVACIZUMAB. [Suspect]
     Active Substance: BEVACIZUMAB
     Indication: MALIGNANT GLIOMA
     Route: 042
  2. FOTEMUSTINE [Suspect]
     Active Substance: FOTEMUSTINE
     Indication: MALIGNANT GLIOMA
     Dosage: INDUCTION PHASE: 5 CONSECUTIVE WEEKS FOLLOWED BY A 4-WEEK REST PERIOD
     Route: 065
  3. FOTEMUSTINE [Suspect]
     Active Substance: FOTEMUSTINE
     Dosage: MAINTENANCE PHASE
     Route: 065

REACTIONS (17)
  - Pulmonary embolism [Unknown]
  - Hypertension [Unknown]
  - Dermatitis acneiform [Unknown]
  - Erythema [Unknown]
  - Proteinuria [Unknown]
  - Anaemia [Unknown]
  - Fatigue [Unknown]
  - Leukopenia [Unknown]
  - Off label use [Unknown]
  - Headache [Unknown]
  - Hypotension [Unknown]
  - Thrombocytopenia [Unknown]
  - Hypertransaminasaemia [Unknown]
  - Bone marrow toxicity [Unknown]
  - Asthenia [Unknown]
  - Skin ulcer [Unknown]
  - Intentional product use issue [Unknown]
